FAERS Safety Report 19874769 (Version 4)
Quarter: 2021Q4

REPORT INFORMATION
  Report Type: Spontaneous
  Country: IT (occurrence: IT)
  Receive Date: 20210923
  Receipt Date: 20211223
  Transmission Date: 20220303
  Serious: Yes (Other)
  Sender: FDA-Public Use
  Company Number: IT-AMRYT PHARMACEUTICALS DAC-AEGR005276

PATIENT

DRUGS (5)
  1. LOMITAPIDE [Suspect]
     Active Substance: LOMITAPIDE
     Indication: Type IIa hyperlipidaemia
     Dosage: 5 MILLIGRAM
     Dates: start: 20181023, end: 20190805
  2. LOMITAPIDE [Suspect]
     Active Substance: LOMITAPIDE
     Dosage: 5 MILLIGRAM
     Dates: start: 20191016
  3. ROSUVASTATIN [Concomitant]
     Active Substance: ROSUVASTATIN
     Indication: Product used for unknown indication
     Dosage: UNK
  4. ROSUVASTATIN [Concomitant]
     Active Substance: ROSUVASTATIN
     Dosage: 20 MILLIGRAM
     Dates: start: 20191009
  5. EZETIMIBE [Concomitant]
     Active Substance: EZETIMIBE
     Indication: Product used for unknown indication

REACTIONS (1)
  - Drug-induced liver injury [Recovered/Resolved]
